FAERS Safety Report 5429459-8 (Version None)
Quarter: 2007Q3

REPORT INFORMATION
  Report Type: 
  Country: None (occurrence: None)
  Receive Date: 20070829
  Receipt Date: 20070824
  Transmission Date: 20080115
  Serious: Yes (Hospitalization)
  Sender: FDA-Public Use
  Company Number: A0654847A

PATIENT
  Age: 64 Year
  Sex: Male

DRUGS (3)
  1. AVANDIA [Suspect]
     Dosage: 4MG TWICE PER DAY
     Route: 048
     Dates: start: 19990101, end: 20061215
  2. LIPITOR [Concomitant]
  3. NORVASC [Concomitant]

REACTIONS (7)
  - ATRIAL FIBRILLATION [None]
  - ATRIOVENTRICULAR BLOCK [None]
  - DYSPNOEA [None]
  - MYOCARDIAL INFARCTION [None]
  - PAIN [None]
  - PERICARDIAL EFFUSION [None]
  - TACHYCARDIA [None]
